FAERS Safety Report 11064440 (Version 1)
Quarter: 2015Q2

REPORT INFORMATION
  Report Type: Report from Study
  Country: DE (occurrence: DE)
  Receive Date: 20150424
  Receipt Date: 20150424
  Transmission Date: 20150821
  Serious: Yes (Hospitalization, Other)
  Sender: FDA-Public Use
  Company Number: PHHY2015DE033068

PATIENT
  Sex: Female
  Weight: 73 kg

DRUGS (5)
  1. EPROSARTAN COMP [Concomitant]
     Indication: HYPERTENSION
     Dosage: 1 DF (600 MG/12.5 MG), QD
     Route: 065
  2. SALBUTAMOL AEROSOL ^RATIOPHARM^ [Concomitant]
     Indication: DYSPNOEA
     Dosage: 0.1 MG, PRN
     Route: 055
  3. QVA149 [Suspect]
     Active Substance: INVESTIGATIONAL PRODUCT
     Indication: CHRONIC OBSTRUCTIVE PULMONARY DISEASE
     Dosage: 1 DF (43/ 85 UG), QD
     Route: 055
     Dates: start: 20140623
  4. BISOPROLOL AL [Concomitant]
     Indication: HYPERTENSION
     Dosage: 5 MG, QD
     Route: 048
  5. EPROSARTAN MESYLATE. [Concomitant]
     Active Substance: EPROSARTAN MESYLATE
     Indication: HYPERTENSION
     Dosage: 600 MG, QD
     Route: 048

REACTIONS (6)
  - Cytomegalovirus infection [Unknown]
  - Pyrexia [Recovered/Resolved]
  - Monoclonal gammopathy [Unknown]
  - Hyperkalaemia [Unknown]
  - Chronic obstructive pulmonary disease [Recovered/Resolved]
  - Gastritis [Recovered/Resolved]

NARRATIVE: CASE EVENT DATE: 20141213
